FAERS Safety Report 24731023 (Version 1)
Quarter: 2024Q4

REPORT INFORMATION
  Report Type: Spontaneous
  Country: US (occurrence: None)
  Receive Date: 20241212
  Receipt Date: 20241212
  Transmission Date: 20250114
  Serious: Yes (Hospitalization)
  Sender: Public
  Company Number: None

PATIENT
  Sex: Female

DRUGS (7)
  1. SILDENAFIL CITRATE [Suspect]
     Active Substance: SILDENAFIL CITRATE
     Indication: Pulmonary arterial hypertension
     Dosage: FREQUENCY : 3 TIMES A DAY;?
     Route: 048
     Dates: start: 202205
  2. FLOLAN STERILE DILUENT [Concomitant]
  3. DEVICE [Concomitant]
     Active Substance: DEVICE
  4. MIRENA IUD SYS [Concomitant]
  5. TREPROSTINIL [Concomitant]
     Active Substance: TREPROSTINIL
  6. OPSUMIT [Concomitant]
     Active Substance: MACITENTAN
  7. WINREVAIR [Concomitant]
     Active Substance: SOTATERCEPT-CSRK

REACTIONS (10)
  - Catheter site haemorrhage [None]
  - Peripheral swelling [None]
  - Pain in extremity [None]
  - Nausea [None]
  - Diarrhoea [None]
  - Chest pain [None]
  - Oxygen saturation decreased [None]
  - Cardiac disorder [None]
  - Skin infection [None]
  - Atrial septal defect [None]
